FAERS Safety Report 5032990-0 (Version None)
Quarter: 2006Q2

REPORT INFORMATION
  Report Type: 
  Country: None (occurrence: None)
  Receive Date: 20060622
  Receipt Date: 20060620
  Transmission Date: 20061013
  Serious: Yes (Other)
  Sender: FDA-Public Use
  Company Number: US-GLAXOSMITHKLINE-A0609686A

PATIENT
  Age: 73 Year
  Sex: Male

DRUGS (2)
  1. CITRUCEL REGULAR SUSPENSION [Suspect]
     Indication: CONSTIPATION
     Dates: start: 20060501
  2. TOPROL-XL [Concomitant]

REACTIONS (2)
  - ABDOMINAL PAIN UPPER [None]
  - RECTAL HAEMORRHAGE [None]
